FAERS Safety Report 7707617-7 (Version None)
Quarter: 2011Q3

REPORT INFORMATION
  Report Type: 
  Country: None (occurrence: None)
  Receive Date: 20110824
  Receipt Date: 20110812
  Transmission Date: 20111222
  Serious: Yes (Hospitalization)
  Sender: FDA-Public Use
  Company Number: ES-JNJFOC-20110806403

PATIENT
  Age: 18 Year
  Sex: Male

DRUGS (3)
  1. ACETAMINOPHEN [Suspect]
     Indication: HEADACHE
  2. ACETAMINOPHEN [Suspect]
  3. BUDESONIDE [Concomitant]

REACTIONS (2)
  - LIVER INJURY [None]
  - PYREXIA [None]
